FAERS Safety Report 18703301 (Version 1)
Quarter: 2021Q1

REPORT INFORMATION
  Report Type: Spontaneous
  Country: BR (occurrence: BR)
  Receive Date: 20210105
  Receipt Date: 20210105
  Transmission Date: 20210419
  Serious: Yes (Other)
  Sender: FDA-Public Use
  Company Number: BR-UCBSA-2020054734

PATIENT

DRUGS (1)
  1. CERTOLIZUMAB PEGOL [Suspect]
     Active Substance: CERTOLIZUMAB PEGOL
     Indication: INFLAMMATORY BOWEL DISEASE
     Dosage: UNK

REACTIONS (5)
  - Psoriasis [Unknown]
  - Dermatitis atopic [Unknown]
  - Skin lesion [Unknown]
  - Vasculitis [Unknown]
  - Herpes virus infection [Unknown]
